FAERS Safety Report 14645859 (Version 2)
Quarter: 2018Q3

REPORT INFORMATION
  Report Type: Other
  Country: ES (occurrence: ES)
  Receive Date: 20180316
  Receipt Date: 20180710
  Transmission Date: 20181010
  Serious: Yes (Hospitalization)
  Sender: FDA-Public Use
  Company Number: ES-MACLEODS PHARMACEUTICALS US LTD-MAC2018011226

PATIENT

DRUGS (2)
  1. LEVOFLOXACIN 500 MG TABLET [Suspect]
     Active Substance: LEVOFLOXACIN
     Indication: RESPIRATORY TRACT INFECTION
     Dosage: 500 MG, QD
     Route: 048
     Dates: start: 20171220, end: 20171226
  2. SINTROM [Interacting]
     Active Substance: ACENOCOUMAROL
     Indication: ATRIAL FIBRILLATION
     Dosage: 13 MG, PER WEEK,DTS: 13 (1/4 ON TUESDAYS, REST OF DAYS 1/2 COMP), 20 COMPRESSED TABLETS
     Route: 048
     Dates: start: 20150922, end: 20171225

REACTIONS (3)
  - Spontaneous haematoma [Recovering/Resolving]
  - Drug interaction [Recovering/Resolving]
  - Abdominal wall haematoma [Recovering/Resolving]

NARRATIVE: CASE EVENT DATE: 20171222
